FAERS Safety Report 7271166-3 (Version None)
Quarter: 2011Q1

REPORT INFORMATION
  Report Type: 
  Country: None (occurrence: None)
  Receive Date: 20110202
  Receipt Date: 20110128
  Transmission Date: 20110831
  Serious: Yes (Other)
  Sender: FDA-Public Use
  Company Number: US-PFIZER INC-2011020902

PATIENT
  Sex: Male
  Weight: 80.726 kg

DRUGS (2)
  1. CHANTIX [Suspect]
     Dosage: 0.5 MG, 2X/DAY
     Route: 048
     Dates: start: 20110101
  2. CHANTIX [Suspect]
     Indication: SMOKING CESSATION THERAPY
     Dosage: 0.5 MG, 1X/DAY
     Route: 048
     Dates: start: 20110122

REACTIONS (6)
  - IRRITABILITY [None]
  - NIGHTMARE [None]
  - CONSTIPATION [None]
  - SUICIDAL IDEATION [None]
  - INSOMNIA [None]
  - FEAR [None]
